FAERS Safety Report 22010425 (Version 1)
Quarter: 2023Q1

REPORT INFORMATION
  Report Type: Spontaneous
  Country: IT (occurrence: IT)
  Receive Date: 20230220
  Receipt Date: 20230220
  Transmission Date: 20230418
  Serious: Yes (Other)
  Sender: FDA-Public Use
  Company Number: IT-SUN PHARMACEUTICAL INDUSTRIES LTD-2023R1-379095

PATIENT
  Age: 67 Year

DRUGS (2)
  1. DEXAMETHASONE [Suspect]
     Active Substance: DEXAMETHASONE
     Indication: Therapy cessation
     Dosage: 2 MILLIGRAM
  2. RITUXIMAB [Suspect]
     Active Substance: RITUXIMAB
     Indication: Therapy cessation
     Dosage: 1000 MILLIGRAM
     Route: 065

REACTIONS (1)
  - Condition aggravated [Unknown]
